FAERS Safety Report 14371363 (Version 1)
Quarter: 2018Q1

REPORT INFORMATION
  Report Type: Spontaneous
  Country: US (occurrence: US)
  Receive Date: 20180109
  Receipt Date: 20180109
  Transmission Date: 20180509
  Serious: No
  Sender: FDA-Public Use
  Company Number: None

PATIENT
  Age: 80 Year
  Sex: Female

DRUGS (1)
  1. IBRANCE [Suspect]
     Active Substance: PALBOCICLIB
     Indication: RHEUMATOID ARTHRITIS
     Dosage: 75 MG ONCE DAILY FOR 21 DAYS ON, 7 DAY OFF ORAL
     Route: 048
     Dates: start: 20171024

REACTIONS (2)
  - Decreased appetite [None]
  - Dry skin [None]

NARRATIVE: CASE EVENT DATE: 20180108
